FAERS Safety Report 15714879 (Version 6)
Quarter: 2019Q1

REPORT INFORMATION
  Report Type: Report from Study
  Country: PE (occurrence: PE)
  Receive Date: 20181212
  Receipt Date: 20190301
  Transmission Date: 20190417
  Serious: Yes (Hospitalization)
  Sender: FDA-Public Use
  Company Number: PE-SEATTLE GENETICS-2018SGN03230

PATIENT
  Age: 32 Year
  Sex: Female

DRUGS (1)
  1. BRENTUXIMAB VEDOTIN-MPI [Suspect]
     Active Substance: BRENTUXIMAB VEDOTIN
     Indication: HODGKIN^S DISEASE
     Dosage: 80 MG, UNK
     Route: 042
     Dates: start: 20180405

REACTIONS (12)
  - Pyrexia [Unknown]
  - Diarrhoea [Unknown]
  - Chemotherapy [Unknown]
  - Irritability [Unknown]
  - Vulvovaginal inflammation [Unknown]
  - Diarrhoea [Unknown]
  - Stomatitis [Unknown]
  - Neutropenia [Unknown]
  - Cough [Unknown]
  - Influenza [Unknown]
  - Amnesia [Unknown]
  - Cough [Unknown]

NARRATIVE: CASE EVENT DATE: 20181211
